FAERS Safety Report 4982490-9 (Version None)
Quarter: 2006Q2

REPORT INFORMATION
  Report Type: 
  Country: None (occurrence: None)
  Receive Date: 20060421
  Receipt Date: 20060418
  Transmission Date: 20061013
  Serious: Yes (Other)
  Sender: FDA-Public Use
  Company Number: USA-2006-0024024

PATIENT
  Sex: Female

DRUGS (2)
  1. OXYCODONE HCL [Suspect]
     Indication: CANCER PAIN
     Dosage: 80 MG, TID
  2. OXYCODONE HCL [Concomitant]

REACTIONS (7)
  - BREAKTHROUGH PAIN [None]
  - DYSPHEMIA [None]
  - LUNG CANCER METASTATIC [None]
  - MEMORY IMPAIRMENT [None]
  - METASTASES TO CENTRAL NERVOUS SYSTEM [None]
  - METASTASES TO SPINE [None]
  - SPEECH DISORDER [None]
